FAERS Safety Report 8402071-4 (Version None)
Quarter: 2012Q2

REPORT INFORMATION
  Report Type: 
  Country: None (occurrence: None)
  Receive Date: 20120601
  Receipt Date: 20120528
  Transmission Date: 20120825
  Serious: Yes (Hospitalization)
  Sender: FDA-Public Use
  Company Number: PHHY2012AU045905

PATIENT
  Sex: Male

DRUGS (1)
  1. LAMISIL [Suspect]
     Indication: TINEA INFECTION
     Dosage: 200 MG, UNK
     Route: 048
     Dates: end: 20120521

REACTIONS (9)
  - INFLAMMATION [None]
  - NEUTROPENIA [None]
  - FEELING ABNORMAL [None]
  - ORAL PAIN [None]
  - SKIN MASS [None]
  - ACNE [None]
  - MALAISE [None]
  - STAPHYLOCOCCAL INFECTION [None]
  - ORAL MUCOSAL BLISTERING [None]
